FAERS Safety Report 14937475 (Version 1)
Quarter: 2018Q2

REPORT INFORMATION
  Report Type: Report from Study
  Country: US (occurrence: US)
  Receive Date: 20180525
  Receipt Date: 20180525
  Transmission Date: 20180711
  Serious: Yes (Other)
  Sender: FDA-Public Use
  Company Number: US-ROCHE-1372728

PATIENT
  Sex: Female
  Weight: 50.39 kg

DRUGS (17)
  1. EPIPEN [Concomitant]
     Active Substance: EPINEPHRINE
     Route: 065
  2. FISH OIL [Concomitant]
     Active Substance: FISH OIL
     Route: 065
  3. PEPCID (UNITED STATES) [Concomitant]
     Dosage: AS REQUIRED
     Route: 065
  4. SYMBICORT [Concomitant]
     Active Substance: BUDESONIDE\FORMOTEROL FUMARATE DIHYDRATE
     Dosage: 160/4.5
     Route: 065
     Dates: start: 2014
  5. ALPHAGAN P [Concomitant]
     Active Substance: BRIMONIDINE TARTRATE
     Dosage: 1 DROP BOTH EYES
     Route: 065
  6. XOLAIR [Suspect]
     Active Substance: OMALIZUMAB
     Indication: ASTHMA
     Dosage: ONGOING- YES
     Route: 058
     Dates: start: 2010
  7. LATANOPROST. [Concomitant]
     Active Substance: LATANOPROST
     Route: 065
  8. XOLAIR [Suspect]
     Active Substance: OMALIZUMAB
     Indication: ASTHMA
     Route: 058
     Dates: start: 20080514
  9. XOLAIR [Suspect]
     Active Substance: OMALIZUMAB
     Dosage: 1 MONTH INTERVAL, ONGOING NO
     Route: 058
     Dates: start: 2012, end: 20180513
  10. ASPIRIN. [Concomitant]
     Active Substance: ASPIRIN
     Route: 065
     Dates: start: 2015
  11. PLAVIX [Concomitant]
     Active Substance: CLOPIDOGREL BISULFATE
     Route: 065
  12. VENTOLIN [Concomitant]
     Active Substance: ALBUTEROL SULFATE
     Indication: ASTHMA
     Dosage: PRN
     Route: 065
  13. ALBUTEROL. [Concomitant]
     Active Substance: ALBUTEROL
     Indication: ASTHMA
     Route: 065
     Dates: start: 1991
  14. FENOFIBRATE. [Concomitant]
     Active Substance: FENOFIBRATE
     Route: 065
  15. NITRO PATCH [Concomitant]
     Active Substance: NITROGLYCERIN
  16. QUININE [Concomitant]
     Active Substance: QUININE
     Dosage: AS REQUIRED
     Route: 065
  17. ALBUTEROL. [Concomitant]
     Active Substance: ALBUTEROL
     Dosage: 90 MCG EVERY 4-6 HOURS
     Route: 065

REACTIONS (22)
  - Dyspnoea [Unknown]
  - Dyspnoea [Not Recovered/Not Resolved]
  - Cardiac disorder [Unknown]
  - Oxygen saturation decreased [Unknown]
  - Rheumatoid arthritis [Not Recovered/Not Resolved]
  - Osteoarthritis [Unknown]
  - Intermittent claudication [Unknown]
  - Sputum discoloured [Unknown]
  - Viral infection [Unknown]
  - Asthma [Unknown]
  - Dyspepsia [Not Recovered/Not Resolved]
  - Dysphagia [Unknown]
  - Intracranial mass [Unknown]
  - Dizziness [Unknown]
  - Joint swelling [Unknown]
  - Hypoaesthesia [Unknown]
  - Pain in extremity [Not Recovered/Not Resolved]
  - Headache [Unknown]
  - Skin cancer [Recovered/Resolved]
  - Heart rate increased [Unknown]
  - Hyperventilation [Unknown]
  - Lung disorder [Unknown]

NARRATIVE: CASE EVENT DATE: 2011
